FAERS Safety Report 5667833-5 (Version None)
Quarter: 2008Q1

REPORT INFORMATION
  Report Type: 
  Country: None (occurrence: None)
  Receive Date: 20080315
  Receipt Date: 20080207
  Transmission Date: 20080703
  Serious: No
  Sender: FDA-Public Use
  Company Number: US-ABBOTT-08P-163-0437418-00

PATIENT
  Sex: Male

DRUGS (1)
  1. HUMIRA [Suspect]
     Indication: ANKYLOSING SPONDYLITIS
     Route: 058
     Dates: start: 20060101, end: 20080131

REACTIONS (7)
  - ANKYLOSING SPONDYLITIS [None]
  - INJECTION SITE BRUISING [None]
  - INJECTION SITE HAEMORRHAGE [None]
  - JOINT SWELLING [None]
  - NASOPHARYNGITIS [None]
  - PAIN [None]
  - RESPIRATORY TRACT CONGESTION [None]
